FAERS Safety Report 25883464 (Version 1)
Quarter: 2025Q4

REPORT INFORMATION
  Report Type: Other
  Country: CA (occurrence: CA)
  Receive Date: 20251006
  Receipt Date: 20251006
  Transmission Date: 20260118
  Serious: Yes (Disabling, Other)
  Sender: APOTEX
  Company Number: CA-PGRTD-001148418

PATIENT
  Age: 71 Year
  Sex: Male
  Weight: 92.968 kg

DRUGS (1)
  1. ATORVASTATIN [Suspect]
     Active Substance: ATORVASTATIN
     Indication: Dyslipidaemia
     Dosage: 1 EVERY 1 DAYS
     Route: 048

REACTIONS (3)
  - Erectile dysfunction [Recovered/Resolved]
  - Product substitution issue [Recovered/Resolved]
  - Arthralgia [Recovered/Resolved]
